FAERS Safety Report 14580037 (Version 1)
Quarter: 2018Q1

REPORT INFORMATION
  Report Type: Spontaneous
  Country: DK (occurrence: DK)
  Receive Date: 20180228
  Receipt Date: 20180228
  Transmission Date: 20180509
  Serious: Yes (Hospitalization)
  Sender: FDA-Public Use
  Company Number: DK-CIPLA LTD.-2018DK06255

PATIENT

DRUGS (5)
  1. CRESTOR [Concomitant]
     Active Substance: ROSUVASTATIN CALCIUM
     Indication: HYPERCHOLESTEROLAEMIA
     Dosage: 20 MG PER DAY
     Route: 048
     Dates: start: 20151126
  2. AMLODIPINE [Suspect]
     Active Substance: AMLODIPINE BESYLATE
     Indication: HYPERTENSION
     Dosage: 5 MG PER DAY
     Route: 048
     Dates: start: 20151126, end: 20180109
  3. ENALAPRIL [Suspect]
     Active Substance: ENALAPRIL
     Indication: HYPERTENSION
     Dosage: 20 MG PER DAY
     Route: 048
     Dates: start: 20151126, end: 20180109
  4. HJERTEMAGNYL                       /00002701/ [Concomitant]
     Active Substance: ASPIRIN
     Indication: THROMBOSIS PROPHYLAXIS
     Dosage: 75 MG PER DAY
     Route: 048
     Dates: start: 20151126
  5. DONEPEZILHYDROCHLORID [Concomitant]
     Indication: DEMENTIA ALZHEIMER^S TYPE
     Dosage: 10 MG PER DAY
     Route: 048
     Dates: start: 20151126

REACTIONS (2)
  - Renal impairment [Recovered/Resolved]
  - Dehydration [Recovered/Resolved]

NARRATIVE: CASE EVENT DATE: 20180108
